FAERS Safety Report 5749602-0 (Version None)
Quarter: 2008Q2

REPORT INFORMATION
  Report Type: 
  Country: None (occurrence: None)
  Receive Date: 20080527
  Receipt Date: 20080520
  Transmission Date: 20081010
  Serious: Yes (Other)
  Sender: FDA-Public Use
  Company Number: US-ASTRAZENECA-2008UW10338

PATIENT
  Age: 65 Year
  Sex: Male
  Weight: 67.6 kg

DRUGS (5)
  1. SYMBICORT [Suspect]
     Indication: ASTHMA
     Dosage: 160/4.5 UG TWO INHALATIONS BID
     Route: 055
     Dates: start: 20080430
  2. SYMBICORT [Suspect]
     Indication: CHRONIC OBSTRUCTIVE PULMONARY DISEASE
     Dosage: 160/4.5 UG TWO INHALATIONS BID
     Route: 055
     Dates: start: 20080430
  3. RHINOCORT [Concomitant]
  4. GENTAMICIN [Concomitant]
  5. AMPHOTERICIN B [Concomitant]

REACTIONS (1)
  - VITREOUS DETACHMENT [None]
